FAERS Safety Report 6152683-6 (Version None)
Quarter: 2009Q2

REPORT INFORMATION
  Report Type: 
  Country: None (occurrence: None)
  Receive Date: 20090413
  Receipt Date: 20090331
  Transmission Date: 20091009
  Serious: Yes (Other)
  Sender: FDA-Public Use
  Company Number: US-ROCHE-582080

PATIENT
  Sex: Female

DRUGS (4)
  1. CAPECITABINE [Suspect]
     Dosage: 1000 MG, BID
     Route: 065
     Dates: start: 20061001, end: 20070101
  2. CAPECITABINE [Suspect]
     Dosage: 1500 MG, QAM
     Route: 065
     Dates: start: 20061201
  3. CAPECITABINE [Suspect]
     Dosage: 1000 MG, QPM
     Route: 065
     Dates: start: 20061201
  4. BEVACIZUMAB [Suspect]
     Dosage: 15 MG/KG, UNK
     Route: 065
     Dates: start: 20061201, end: 20070501

REACTIONS (1)
  - OSTEONECROSIS [None]
